FAERS Safety Report 5002835-3 (Version None)
Quarter: 2006Q2

REPORT INFORMATION
  Report Type: 
  Country: None (occurrence: None)
  Receive Date: 20060512
  Receipt Date: 20060425
  Transmission Date: 20061013
  Serious: Yes (Hospitalization, Other)
  Sender: FDA-Public Use
  Company Number: US200602005452

PATIENT
  Age: 67 Year
  Sex: Female
  Weight: 73.9 kg

DRUGS (11)
  1. FORTEO [Suspect]
     Indication: OSTEOPOROSIS
     Dosage: SEE IMAGE
     Dates: start: 20051028
  2. FORTEO [Suspect]
  3. FORTEO [Concomitant]
  4. METHOTREXATE [Concomitant]
  5. TRAZODONE HCL [Concomitant]
  6. PRAMIPEXOLE DIHYDROCHLORIDE [Concomitant]
  7. BUSPAR /AUS/ (BUSPIRONE HYDROCHLORIDE) [Concomitant]
  8. PREDNISONE TAB [Concomitant]
  9. ENBREL [Concomitant]
  10. OXYCONTIN [Concomitant]
  11. PREVACID [Concomitant]

REACTIONS (9)
  - EMPHYSEMA [None]
  - NAUSEA [None]
  - PHARMACEUTICAL PRODUCT COMPLAINT [None]
  - PULMONARY EMBOLISM [None]
  - RIB FRACTURE [None]
  - ROAD TRAFFIC ACCIDENT [None]
  - SPINAL COMPRESSION FRACTURE [None]
  - SPINAL FRACTURE [None]
  - THROMBOPHLEBITIS [None]
